FAERS Safety Report 4941226-8 (Version None)
Quarter: 2006Q1

REPORT INFORMATION
  Report Type: 
  Country: None (occurrence: None)
  Receive Date: 20060310
  Receipt Date: 20060310
  Transmission Date: 20060701
  Serious: Yes (Hospitalization)
  Sender: FDA-Public Use
  Company Number: None

PATIENT
  Age: 18 Year
  Sex: Female
  Weight: 80 kg

DRUGS (2)
  1. DEPO-PROVERA [Suspect]
     Indication: CONTRACEPTION
     Dosage: 150 MG
     Dates: start: 20050224, end: 20050524
  2. DEPO-PROVERA [Suspect]
     Indication: CONTRACEPTION
     Dosage: 150 MG
     Dates: start: 20050626, end: 20050927

REACTIONS (13)
  - ACNE [None]
  - ALOPECIA [None]
  - BREAST TENDERNESS [None]
  - DIZZINESS [None]
  - DYSPAREUNIA [None]
  - DYSPNOEA [None]
  - EXCITABILITY [None]
  - FURUNCLE [None]
  - IMMUNOSUPPRESSION [None]
  - INADEQUATE LUBRICATION [None]
  - NERVOUSNESS [None]
  - PAIN [None]
  - PANIC ATTACK [None]
